FAERS Safety Report 12948332 (Version 1)
Quarter: 2016Q4

REPORT INFORMATION
  Report Type: Spontaneous
  Country: US (occurrence: US)
  Receive Date: 20161116
  Receipt Date: 20161116
  Transmission Date: 20170207
  Serious: Yes (Life-Threatening, Hospitalization)
  Sender: FDA-Public Use
  Company Number: US-LPDUSPRD-20161012

PATIENT
  Sex: Male

DRUGS (6)
  1. BLEOMYCIN [Concomitant]
     Active Substance: BLEOMYCIN SULFATE
     Dosage: 2 UNITS
     Route: 065
  2. ETOPOSIDE. [Concomitant]
     Active Substance: ETOPOSIDE
     Dosage: 3 MG/KG DAILY FOR 5 DAYS
  3. CISPLATIN. [Concomitant]
     Active Substance: CISPLATIN
     Dosage: 0.7MG/KG DAILY FOR 5 DAYS
  4. METHOTREXATE. [Concomitant]
     Active Substance: METHOTREXATE
     Dosage: 33 MG\KG SINGLE DOSE
  5. LEUCOVORIN. [Concomitant]
     Active Substance: LEUCOVORIN
     Dosage: 15MG/M2
  6. DEXAMETHASONE SODIUM PHOSPHATE INJECTION, USP (4901-25) [Suspect]
     Active Substance: DEXAMETHASONE SODIUM PHOSPHATE
     Dosage: UNKNOWN
     Route: 065

REACTIONS (5)
  - Blood cortisol decreased [Recovered/Resolved]
  - Adrenal insufficiency [Unknown]
  - Haemorrhage [Unknown]
  - Hypoglycaemia [Unknown]
  - Deafness [Unknown]
